FAERS Safety Report 18900977 (Version 2)
Quarter: 2021Q1

REPORT INFORMATION
  Report Type: Spontaneous
  Country: SE (occurrence: SE)
  Receive Date: 20210217
  Receipt Date: 20210217
  Transmission Date: 20210420
  Serious: Yes (Other)
  Sender: FDA-Public Use
  Company Number: SE-ORION CORPORATION ORION PHARMA-TREX2020-2295

PATIENT
  Sex: Female

DRUGS (1)
  1. METHOTREXATE ORION [Suspect]
     Active Substance: METHOTREXATE
     Indication: PRODUCT USED FOR UNKNOWN INDICATION
     Route: 065

REACTIONS (6)
  - Nausea [Unknown]
  - Blood disorder [Unknown]
  - Dyspnoea [Unknown]
  - Pancytopenia [Unknown]
  - Syncope [Unknown]
  - Alopecia [Unknown]
